FAERS Safety Report 19890357 (Version 3)
Quarter: 2021Q4

REPORT INFORMATION
  Report Type: Spontaneous
  Country: DE (occurrence: DE)
  Receive Date: 20210927
  Receipt Date: 20211109
  Transmission Date: 20220303
  Serious: Yes (Death)
  Sender: FDA-Public Use
  Company Number: DE-PFIZER INC-202101224306

PATIENT
  Age: 99 Year
  Sex: Female

DRUGS (1)
  1. TAVOR (LORAZEPAM) [Suspect]
     Active Substance: LORAZEPAM
     Indication: Pain
     Dosage: 2 TABLETS

REACTIONS (4)
  - Respiratory failure [Fatal]
  - Cerebral haemorrhage [Fatal]
  - Haematoma [Unknown]
  - Off label use [Unknown]

NARRATIVE: CASE EVENT DATE: 20200101
